FAERS Safety Report 6587939-6 (Version None)
Quarter: 2010Q1

REPORT INFORMATION
  Report Type: 
  Country: None (occurrence: None)
  Receive Date: 20100201
  Receipt Date: 20090320
  Transmission Date: 20100710
  Serious: Yes (Other)
  Sender: FDA-Public Use
  Company Number: 623905

PATIENT
  Age: 59 Year
  Sex: Male
  Weight: 78 kg

DRUGS (2)
  1. RIBAVIRIN [Suspect]
     Indication: HEPATITIS C
     Dosage: 600 MG 2 PER DAY ORAL
     Route: 048
     Dates: start: 20070301
  2. INFERGEN [Suspect]
     Indication: HEPATITIS C
     Dosage: 15 UG DAILY SUBCUTANEOUS
     Route: 058
     Dates: start: 20081103

REACTIONS (2)
  - NEUTROPHIL COUNT DECREASED [None]
  - WHITE BLOOD CELL COUNT DECREASED [None]
